FAERS Safety Report 8583818-3 (Version None)
Quarter: 2012Q3

REPORT INFORMATION
  Report Type: 
  Country: None (occurrence: None)
  Receive Date: 20120810
  Receipt Date: 20120731
  Transmission Date: 20120928
  Serious: Yes (Other)
  Sender: FDA-Public Use
  Company Number: GB-009507513-1208GBR001135

PATIENT

DRUGS (4)
  1. ZOCOR [Suspect]
     Indication: HYPERCHOLESTEROLAEMIA
     Dosage: 80 MG, QD
     Route: 048
     Dates: end: 20120401
  2. LEVOTHYROXINE SODIUM [Concomitant]
     Dosage: 75 MG, QD
     Route: 048
  3. ACETAMINOPHEN [Concomitant]
     Dosage: 2 DF, TID
  4. TRAMADOL HYDROCHLORIDE [Concomitant]
     Dosage: 100 MG, UNK
     Route: 048

REACTIONS (2)
  - PAIN [None]
  - MUSCLE SPASMS [None]
